FAERS Safety Report 5333338-4 (Version None)
Quarter: 2007Q2

REPORT INFORMATION
  Report Type: 
  Country: None (occurrence: None)
  Receive Date: 20070524
  Receipt Date: 20070514
  Transmission Date: 20071010
  Serious: Yes (Hospitalization)
  Sender: FDA-Public Use
  Company Number: US-ELI_LILLY_AND_COMPANY-US200705003719

PATIENT
  Age: 82 Year
  Sex: Female

DRUGS (1)
  1. FORTEO [Suspect]
     Indication: OSTEOPOROSIS
     Dates: start: 20060301

REACTIONS (9)
  - DEHYDRATION [None]
  - FEELING ABNORMAL [None]
  - FUNGAL INFECTION [None]
  - GENERAL PHYSICAL HEALTH DETERIORATION [None]
  - KIDNEY INFECTION [None]
  - MICTURITION FREQUENCY DECREASED [None]
  - PAIN [None]
  - PULMONARY FIBROSIS [None]
  - RENAL IMPAIRMENT [None]
